FAERS Safety Report 25739135 (Version 3)
Quarter: 2025Q3

REPORT INFORMATION
  Report Type: Report from Study
  Country: KR (occurrence: KR)
  Receive Date: 20250829
  Receipt Date: 20250919
  Transmission Date: 20251020
  Serious: Yes (Death, Other)
  Sender: TAKEDA
  Company Number: KR-TAKEDA-2025TUS075645

PATIENT
  Age: 23 Year
  Sex: Male
  Weight: 59 kg

DRUGS (20)
  1. MARIBAVIR [Suspect]
     Active Substance: MARIBAVIR
     Indication: Cytomegalovirus viraemia
     Dosage: 400 MILLIGRAM, BID
     Dates: start: 20250516, end: 20250601
  2. Fullgram [Concomitant]
     Indication: Pneumocystis jirovecii pneumonia
     Dosage: 600 MILLIGRAM, TID
     Dates: start: 20250519, end: 20250603
  3. Mucosta sr [Concomitant]
     Indication: Pneumocystis jirovecii pneumonia
     Dosage: 150 MILLIGRAM, BID
     Dates: start: 20250509
  4. URSODIOL [Concomitant]
     Active Substance: URSODIOL
     Indication: Liver disorder
     Dosage: 100 MILLIGRAM, TID
     Dates: start: 20240923
  5. Solondo [Concomitant]
     Indication: Graft versus host disease in lung
     Dosage: 15 MILLIGRAM, BID
     Dates: start: 20250428
  6. MAGNESIUM HYDROXIDE [Concomitant]
     Active Substance: MAGNESIUM HYDROXIDE
     Indication: Constipation prophylaxis
     Dosage: 500 MILLIGRAM, TID
     Dates: start: 20250513
  7. LEVODROPROPIZINE [Concomitant]
     Active Substance: LEVODROPROPIZINE
     Indication: Pneumocystis jirovecii pneumonia
     Dosage: 60 MILLIGRAM, TID
     Dates: start: 20250406
  8. ACETYLCYSTEINE [Concomitant]
     Active Substance: ACETYLCYSTEINE
     Indication: Pneumocystis jirovecii pneumonia
     Dosage: 600 MILLIGRAM, TID
     Dates: start: 20250408
  9. SULFAMETHOXAZOLE\TRIMETHOPRIM [Concomitant]
     Active Substance: SULFAMETHOXAZOLE\TRIMETHOPRIM
     Indication: Infection prophylaxis
     Dosage: 400 MILLIGRAM, QD
     Dates: start: 20250422
  10. NOXAFIL [Concomitant]
     Active Substance: POSACONAZOLE
     Indication: Fungal infection
     Dosage: 300 MILLIGRAM, QD
     Dates: start: 20250513
  11. REZUROCK [Concomitant]
     Active Substance: BELUMOSUDIL
     Indication: Chronic graft versus host disease in lung
     Dosage: 200 MILLIGRAM, QD
     Dates: start: 20250510
  12. Adipam [Concomitant]
     Indication: Folliculitis
     Dosage: 10 GRAM, QD
     Dates: start: 20250509
  13. Cipol n [Concomitant]
     Indication: Graft versus host disease
     Dosage: 25 MILLIGRAM, QD
     Dates: start: 20250424, end: 20250508
  14. Cipol n [Concomitant]
     Dosage: 50 MILLIGRAM, QD
     Dates: start: 20250509, end: 20250519
  15. TRAMADOL HYDROCHLORIDE [Concomitant]
     Active Substance: TRAMADOL HYDROCHLORIDE
     Indication: Pneumocystis jirovecii pneumonia
     Dates: start: 20250416, end: 20250522
  16. Vivaquine [Concomitant]
     Indication: Pneumocystis jirovecii pneumonia
     Dosage: 30 MILLIGRAM, QD
     Dates: start: 20250519, end: 20250604
  17. Bc morphine sulfate [Concomitant]
     Indication: Pneumocystis jirovecii pneumonia
     Dates: start: 20250521, end: 20250610
  18. Dulackhan [Concomitant]
     Indication: Constipation prophylaxis
     Dosage: 15 MILLILITER, TID
     Dates: start: 20250525
  19. METHYLPREDNISOLONE [Concomitant]
     Active Substance: METHYLPREDNISOLONE
     Indication: Graft versus host disease
     Dosage: 30 MILLIGRAM, BID
     Dates: start: 20250521, end: 20250526
  20. METHYLPREDNISOLONE [Concomitant]
     Active Substance: METHYLPREDNISOLONE
     Dosage: 20 MILLIGRAM, BID
     Dates: start: 20250527, end: 20250601

REACTIONS (3)
  - Respiratory failure [Fatal]
  - Tachypnoea [Not Recovered/Not Resolved]
  - Hypertension [Not Recovered/Not Resolved]

NARRATIVE: CASE EVENT DATE: 20250518
